FAERS Safety Report 6540752-8 (Version None)
Quarter: 2010Q1

REPORT INFORMATION
  Report Type: 
  Country: None (occurrence: None)
  Receive Date: 20100118
  Receipt Date: 20100113
  Transmission Date: 20100710
  Serious: Yes (Hospitalization)
  Sender: FDA-Public Use
  Company Number: IT-NOVOPROD-300255

PATIENT
  Age: 13 Year
  Sex: Female
  Weight: 68.8 kg

DRUGS (1)
  1. NORDITROPIN [Suspect]
     Indication: HYPOPITUITARISM
     Dosage: 0,033 MG/KG/DAY 6 WEEKLY DOSES
     Route: 058

REACTIONS (1)
  - PANCREATITIS [None]
